FAERS Safety Report 7796993-5 (Version None)
Quarter: 2011Q4

REPORT INFORMATION
  Report Type: 
  Country: None (occurrence: None)
  Receive Date: 20111005
  Receipt Date: 20111005
  Transmission Date: 20120403
  Serious: Yes (Other)
  Sender: FDA-Public Use
  Company Number: None

PATIENT
  Sex: Male
  Weight: 67.585 kg

DRUGS (1)
  1. PREDNISONE [Suspect]
     Indication: COLITIS ULCERATIVE
     Dosage: 5MG
     Route: 048

REACTIONS (5)
  - DEPRESSION [None]
  - INSOMNIA [None]
  - ANXIETY [None]
  - PANIC ATTACK [None]
  - WEIGHT INCREASED [None]
